FAERS Safety Report 10525395 (Version 1)
Quarter: 2014Q4

REPORT INFORMATION
  Report Type: Spontaneous
  Country: IT (occurrence: None)
  Receive Date: 20141015
  Receipt Date: 20141015
  Transmission Date: 20150528
  Serious: Yes (Life-Threatening)
  Sender: FDA-Public Use
  Company Number: B1036971A

PATIENT
  Age: 58 Year
  Sex: Male

DRUGS (9)
  1. OMEPRAZOLE. [Concomitant]
     Active Substance: OMEPRAZOLE
  2. WARFARIN [Concomitant]
     Active Substance: WARFARIN
  3. SPIRONOLACTONE. [Concomitant]
     Active Substance: SPIRONOLACTONE
  4. DELORAZEPAM [Suspect]
     Active Substance: DELORAZEPAM
     Indication: INTENTIONAL SELF-INJURY
     Dates: start: 20140912
  5. PAROXETINE HYDROCHLORIDE (FORMULATION UNKNOWN) (PAROXETINE HYDROCHLORIDE) [Suspect]
     Active Substance: PAROXETINE HYDROCHLORIDE
     Indication: INTENTIONAL SELF-INJURY
     Dosage: SINGLE DOSE ORAL
     Route: 048
     Dates: start: 20140912
  6. FRUSEMIDE [Concomitant]
     Active Substance: FUROSEMIDE
  7. DIGOXIN. [Suspect]
     Active Substance: DIGOXIN
     Indication: INTENTIONAL SELF-INJURY
     Route: 048
     Dates: start: 20140912
  8. METFORMIN HYDROCHLORIDE. [Concomitant]
     Active Substance: METFORMIN HYDROCHLORIDE
  9. BUPROPION HYDROCHLORIDE. [Concomitant]
     Active Substance: BUPROPION HYDROCHLORIDE

REACTIONS (8)
  - Exposure via ingestion [None]
  - Pallor [None]
  - Nausea [None]
  - Hyperhidrosis [None]
  - Cardioactive drug level increased [None]
  - Suicide attempt [None]
  - Intentional overdose [None]
  - Vomiting [None]

NARRATIVE: CASE EVENT DATE: 20140913
